FAERS Safety Report 9369257 (Version 2)
Quarter: 2013Q3

REPORT INFORMATION
  Report Type: Report from Study
  Country: US (occurrence: US)
  Receive Date: 20130626
  Receipt Date: 20130916
  Transmission Date: 20140515
  Serious: No
  Sender: FDA-Public Use
  Company Number: PHEH2013US013230

PATIENT
  Sex: Female

DRUGS (9)
  1. TASIGNA [Suspect]
     Indication: CHRONIC MYELOID LEUKAEMIA
     Dosage: 300 MG, BID
     Route: 048
     Dates: start: 20100901
  2. PREDNISOLONE [Concomitant]
  3. COLACE [Concomitant]
  4. VITAMIN B12 [Concomitant]
  5. MULTI VITAMIN AND FLUORIDE SUPPLEMENTAL [Concomitant]
  6. BIOTIN [Concomitant]
  7. CALCIUM [Concomitant]
  8. FOLIC ACID [Concomitant]
  9. LIALDA [Concomitant]

REACTIONS (4)
  - Onychoclasis [Not Recovered/Not Resolved]
  - Dry skin [Not Recovered/Not Resolved]
  - Alopecia [Not Recovered/Not Resolved]
  - Muscle spasms [Not Recovered/Not Resolved]
